FAERS Safety Report 24918728 (Version 2)
Quarter: 2025Q1

REPORT INFORMATION
  Report Type: Report from Study
  Country: US (occurrence: US)
  Receive Date: 20250203
  Receipt Date: 20250208
  Transmission Date: 20250409
  Serious: Yes (Other)
  Sender: ABBVIE
  Company Number: US-ABBVIE-6110448

PATIENT
  Age: 66 Year
  Sex: Female

DRUGS (1)
  1. CREON [Suspect]
     Active Substance: PANCRELIPASE AMYLASE\PANCRELIPASE LIPASE\PANCRELIPASE PROTEASE
     Indication: Product used for unknown indication
     Route: 048
     Dates: start: 20240501

REACTIONS (7)
  - Pancreatic carcinoma [Not Recovered/Not Resolved]
  - Adnexa uteri cyst [Not Recovered/Not Resolved]
  - Brain fog [Unknown]
  - Pelvic cyst [Unknown]
  - Cholecystectomy [Unknown]
  - Splenectomy [Unknown]
  - Pancreatectomy [Unknown]

NARRATIVE: CASE EVENT DATE: 20240401
